FAERS Safety Report 17471327 (Version 1)
Quarter: 2020Q1

REPORT INFORMATION
  Report Type: Spontaneous
  Country: US (occurrence: US)
  Receive Date: 20200227
  Receipt Date: 20200227
  Transmission Date: 20200409
  Serious: No
  Sender: FDA-Public Use
  Company Number: US-BAXTER-2020BAX004630

PATIENT
  Age: 52 Year
  Sex: Female

DRUGS (1)
  1. DIANEAL LOW CALCIUM PERITONEAL DIALYSIS SOLUTION WITH DEXTROSE [Suspect]
     Active Substance: CALCIUM CHLORIDE\DEXTROSE\MAGNESIUM CHLORIDE\SODIUM CHLORIDE\SODIUM LACTATE
     Indication: PERITONEAL DIALYSIS
     Route: 033
     Dates: start: 201911

REACTIONS (4)
  - Dyspnoea [Recovering/Resolving]
  - Peritoneal dialysis complication [Recovering/Resolving]
  - Abdominal distension [Recovering/Resolving]
  - Fluid retention [Recovering/Resolving]

NARRATIVE: CASE EVENT DATE: 20200212
